FAERS Safety Report 8010549-0 (Version None)
Quarter: 2011Q4

REPORT INFORMATION
  Report Type: 
  Country: None (occurrence: None)
  Receive Date: 20111228
  Receipt Date: 20111221
  Transmission Date: 20120403
  Serious: Yes (Other)
  Sender: FDA-Public Use
  Company Number: PHHY2011FR112364

PATIENT
  Age: 74 Year
  Sex: Female

DRUGS (4)
  1. ZOLEDRONOC ACID [Suspect]
     Indication: OSTEOPENIA
     Dosage: UNK UKN, UNK
     Route: 042
     Dates: start: 20090101
  2. ZOLEDRONOC ACID [Suspect]
     Dosage: UNK UKN, UNK
     Route: 042
     Dates: start: 20100101
  3. DILTIAZEM HCL [Concomitant]
     Indication: HYPERTENSION
     Dosage: UNK UKN, UNK
  4. ZOLEDRONOC ACID [Suspect]
     Dosage: UNK UKN, UNK
     Route: 042
     Dates: start: 20111215

REACTIONS (7)
  - GASTRITIS [None]
  - GINGIVAL ABSCESS [None]
  - DRUG INEFFECTIVE [None]
  - GINGIVAL SWELLING [None]
  - GINGIVAL ERYTHEMA [None]
  - MUCOSAL HAEMORRHAGE [None]
  - BONE DENSITY DECREASED [None]
